FAERS Safety Report 8815099 (Version 2)
Quarter: 2015Q2

REPORT INFORMATION
  Report Type: Report from Study
  Country: US (occurrence: US)
  Receive Date: 20120928
  Receipt Date: 20150406
  Transmission Date: 20150821
  Serious: Yes (Death)
  Sender: FDA-Public Use
  Company Number: US-ROCHE-1129590

PATIENT
  Sex: Female
  Weight: 89 kg

DRUGS (11)
  1. KYTRIL [Concomitant]
     Active Substance: GRANISETRON HYDROCHLORIDE
     Route: 042
  2. CARBOPLATIN. [Concomitant]
     Active Substance: CARBOPLATIN
     Route: 042
  3. VINORELBINE [Concomitant]
     Active Substance: VINORELBINE\VINORELBINE TARTRATE
  4. PROCRIT [Concomitant]
     Active Substance: ERYTHROPOIETIN
     Route: 058
  5. HEPARIN LOCK FLUSH [Concomitant]
     Active Substance: HEPARIN SODIUM
     Route: 065
  6. PACLITAXEL. [Concomitant]
     Active Substance: PACLITAXEL
     Route: 042
  7. HERCEPTIN [Suspect]
     Active Substance: TRASTUZUMAB
     Indication: TRACHEAL CANCER
     Route: 042
     Dates: start: 20040730
  8. HERCEPTIN [Suspect]
     Active Substance: TRASTUZUMAB
     Indication: LUNG NEOPLASM MALIGNANT
  9. HERCEPTIN [Suspect]
     Active Substance: TRASTUZUMAB
     Indication: LUNG NEOPLASM MALIGNANT
  10. PALONOSETRON [Concomitant]
     Active Substance: PALONOSETRON
     Route: 042
  11. PROCRIT [Concomitant]
     Active Substance: ERYTHROPOIETIN
     Route: 058

REACTIONS (2)
  - Disease progression [Unknown]
  - Death [Fatal]
